FAERS Safety Report 4643756-5 (Version None)
Quarter: 2005Q2

REPORT INFORMATION
  Report Type: 
  Country: None (occurrence: None)
  Receive Date: 20050425
  Receipt Date: 20050412
  Transmission Date: 20051028
  Serious: Yes (Other)
  Sender: FDA-Public Use
  Company Number: DE-JNJFOC-20050305068

PATIENT
  Age: 65 Year
  Sex: Female
  Weight: 60 kg

DRUGS (7)
  1. INFLIXIMAB [Suspect]
     Dosage: 16TH INFUSION ADMINISTERED
     Route: 042
  2. INFLIXIMAB [Suspect]
     Dosage: 15TH INFUSIONS ADMINISTERED
     Route: 042
  3. INFLIXIMAB [Suspect]
     Indication: RHEUMATOID ARTHRITIS
     Route: 042
  4. METHOTREXATE [Concomitant]
  5. SULFASALAZINE [Concomitant]
     Route: 049
  6. HYDROXYCHLOROQUINE SULPHATE [Concomitant]
     Route: 049
  7. PREDNISOLONE [Concomitant]
     Route: 049

REACTIONS (3)
  - GENERAL PHYSICAL HEALTH DETERIORATION [None]
  - LUNG SQUAMOUS CELL CARCINOMA STAGE UNSPECIFIED [None]
  - METASTASES TO LYMPH NODES [None]
